FAERS Safety Report 5403449-3 (Version None)
Quarter: 2007Q3

REPORT INFORMATION
  Report Type: 
  Country: None (occurrence: None)
  Receive Date: 20070713
  Receipt Date: 20070206
  Transmission Date: 20080115
  Serious: Yes (Hospitalization)
  Sender: FDA-Public Use
  Company Number: US-JNJFOC-20061103963

PATIENT
  Age: 23 Year
  Sex: Female
  Weight: 112.9457 kg

DRUGS (7)
  1. ORTHO EVRA [Suspect]
     Indication: CONTRACEPTION
     Dates: start: 20021201, end: 20030501
  2. DEPRO PROVERA (MEDROXYPROGESTERONE ACETATE) [Suspect]
     Indication: CONTRACEPTION
     Dates: start: 20030520
  3. IBUPROFEN [Concomitant]
  4. FLONASE [Concomitant]
  5. WELBUTRIN (BUPROPION HYDROCHLORIDE) [Concomitant]
  6. ZYRTEC [Concomitant]
  7. BIAXIN [Concomitant]

REACTIONS (3)
  - HEADACHE [None]
  - INTRACRANIAL VENOUS SINUS THROMBOSIS [None]
  - PULMONARY EMBOLISM [None]
